FAERS Safety Report 7702943-X (Version None)
Quarter: 2011Q3

REPORT INFORMATION
  Report Type: 
  Country: None (occurrence: None)
  Receive Date: 20110823
  Receipt Date: 20110811
  Transmission Date: 20111222
  Serious: Yes (Other)
  Sender: FDA-Public Use
  Company Number: PHHY2011DE41798

PATIENT
  Sex: Male

DRUGS (2)
  1. GLEEVEC [Suspect]
     Indication: CHRONIC MYELOID LEUKAEMIA
     Dosage: 400 MG, DAILY
     Route: 048
     Dates: start: 20021101
  2. IFN ALPHA [Concomitant]
     Dosage: UNK UKN, UNK
     Dates: start: 19970101, end: 20030101

REACTIONS (6)
  - NODAL MARGINAL ZONE B-CELL LYMPHOMA [None]
  - NEOPLASM MALIGNANT [None]
  - DISORDER OF ORBIT [None]
  - ORBITAL OEDEMA [None]
  - LYMPHOID TISSUE HYPERPLASIA [None]
  - LYMPHOPROLIFERATIVE DISORDER [None]
